FAERS Safety Report 6512032-8 (Version None)
Quarter: 2009Q4

REPORT INFORMATION
  Report Type: 
  Country: None (occurrence: None)
  Receive Date: 20091222
  Receipt Date: 20090728
  Transmission Date: 20100525
  Serious: No
  Sender: FDA-Public Use
  Company Number: US-ASTRAZENECA-2009UW12844

PATIENT
  Age: 65 Year
  Sex: Female
  Weight: 47.6 kg

DRUGS (7)
  1. CRESTOR [Suspect]
     Indication: BLOOD CHOLESTEROL INCREASED
     Route: 048
     Dates: start: 20090501
  2. VITAMIN-MINERAL COMPOUND TAB [Concomitant]
     Indication: DRY EYE
  3. OSCAL ULTRA [Concomitant]
  4. GAS-X [Concomitant]
  5. GLUCOSAMINE CHONDROITIN [Concomitant]
     Indication: ARTHROPATHY
  6. CENTRUM SILVER [Concomitant]
  7. FISH OIL [Concomitant]

REACTIONS (7)
  - CHEST PAIN [None]
  - DYSPNOEA [None]
  - FLATULENCE [None]
  - HEADACHE [None]
  - INAPPROPRIATE SCHEDULE OF DRUG ADMINISTRATION [None]
  - MYALGIA [None]
  - PAIN IN EXTREMITY [None]
